FAERS Safety Report 7861697-7 (Version None)
Quarter: 2011Q4

REPORT INFORMATION
  Report Type: 
  Country: None (occurrence: None)
  Receive Date: 20111027
  Receipt Date: 20110928
  Transmission Date: 20120403
  Serious: Yes (Hospitalization)
  Sender: FDA-Public Use
  Company Number: BR-ROCHE-1000929

PATIENT
  Sex: Female
  Weight: 62 kg

DRUGS (9)
  1. METHOTREXATE [Concomitant]
  2. AMITRIPTYLINE HCL [Concomitant]
  3. MABTHERA [Suspect]
     Indication: PRODUCT USED FOR UNKNOWN INDICATION
     Dates: start: 20110401
  4. DICLOFENAC SODIUM [Concomitant]
  5. FENTANYL-100 [Concomitant]
  6. PREDNISONE [Concomitant]
  7. CARBAMAZEPINE [Concomitant]
  8. HALDOL [Concomitant]
  9. CHLORPROMAZINE [Concomitant]

REACTIONS (2)
  - RHEUMATOID ARTHRITIS [None]
  - UTERINE DISORDER [None]
